FAERS Safety Report 10560712 (Version 2)
Quarter: 2014Q4

REPORT INFORMATION
  Report Type: Spontaneous
  Country: JP (occurrence: JP)
  Receive Date: 20141103
  Receipt Date: 20141126
  Transmission Date: 20150529
  Serious: Yes (Hospitalization, Other)
  Sender: FDA-Public Use
  Company Number: JP-GLAXOSMITHKLINE-JP2014JPN012524

PATIENT
  Age: 61 Year
  Sex: Male

DRUGS (2)
  1. NO DRUG NAME [Suspect]
     Active Substance: UNSPECIFIED INGREDIENT
     Indication: EPILEPSY
     Dosage: UNK
     Route: 048
     Dates: start: 201002
  2. LAMICTAL [Suspect]
     Active Substance: LAMOTRIGINE
     Indication: EPILEPSY
     Dosage: UNK
     Route: 048
     Dates: start: 201002

REACTIONS (8)
  - Hepatic function abnormal [Unknown]
  - Skin exfoliation [Unknown]
  - Drug reaction with eosinophilia and systemic symptoms [Unknown]
  - Seizure [Unknown]
  - Pyrexia [Unknown]
  - Erythema [Unknown]
  - White blood cell count increased [Unknown]
  - Rash [Unknown]

NARRATIVE: CASE EVENT DATE: 2010
